FAERS Safety Report 23678118 (Version 4)
Quarter: 2024Q3

REPORT INFORMATION
  Report Type: Spontaneous
  Country: US (occurrence: US)
  Receive Date: 20240327
  Receipt Date: 20240702
  Transmission Date: 20241016
  Serious: Yes (Life-Threatening, Hospitalization, Other)
  Sender: BRISTOL MYERS SQUIBB
  Company Number: US-BRISTOL-MYERS SQUIBB COMPANY-2024-048540

PATIENT
  Age: 69 Year
  Sex: Male
  Weight: 117.9 kg

DRUGS (28)
  1. OPDIVO [Suspect]
     Active Substance: NIVOLUMAB
     Indication: Metastatic malignant melanoma
     Route: 042
     Dates: start: 20240229, end: 20240321
  2. YERVOY [Suspect]
     Active Substance: IPILIMUMAB
     Indication: Metastatic malignant melanoma
     Route: 042
     Dates: start: 20240229
  3. LISINOPRIL [Concomitant]
     Active Substance: LISINOPRIL
     Indication: Product used for unknown indication
     Route: 048
     Dates: start: 20240206
  4. ELIQUIS [Concomitant]
     Active Substance: APIXABAN
     Indication: Product used for unknown indication
     Route: 048
     Dates: start: 20240206
  5. PROPAFENONE [Concomitant]
     Active Substance: PROPAFENONE
     Indication: Product used for unknown indication
     Route: 048
     Dates: start: 20240206
  6. PROPRANOLOL [Concomitant]
     Active Substance: PROPRANOLOL HYDROCHLORIDE
     Indication: Product used for unknown indication
  7. SERTRALINE [Concomitant]
     Active Substance: SERTRALINE HYDROCHLORIDE
     Indication: Product used for unknown indication
     Route: 048
     Dates: start: 20240206
  8. CANRENOATE POTASSIUM [Concomitant]
     Active Substance: CANRENOATE POTASSIUM
     Indication: Product used for unknown indication
     Route: 048
  9. OMEPRAZOLE [Concomitant]
     Active Substance: OMEPRAZOLE
     Indication: Product used for unknown indication
     Dosage: DELAYED RELEASE
     Dates: start: 20240206
  10. FAMOTIDINE [Concomitant]
     Active Substance: FAMOTIDINE
     Indication: Product used for unknown indication
     Route: 048
     Dates: start: 20240206
  11. PRIMIDONE [Concomitant]
     Active Substance: PRIMIDONE
     Indication: Product used for unknown indication
     Route: 048
  12. PRIMIDONE [Concomitant]
     Active Substance: PRIMIDONE
     Route: 048
     Dates: start: 20240206
  13. XYZAL [Concomitant]
     Active Substance: LEVOCETIRIZINE DIHYDROCHLORIDE
     Indication: Product used for unknown indication
     Route: 048
     Dates: start: 20240206
  14. ATORVASTATIN [Concomitant]
     Active Substance: ATORVASTATIN
     Indication: Product used for unknown indication
     Route: 048
     Dates: start: 20240206
  15. OXCARBAZEPINE [Concomitant]
     Active Substance: OXCARBAZEPINE
     Indication: Product used for unknown indication
     Route: 048
     Dates: start: 20240206
  16. ACETAMINOPHEN [Concomitant]
     Active Substance: ACETAMINOPHEN
     Dosage: 2 Q DAY AS NEEDED
     Route: 048
  17. AUGMENTIN [Concomitant]
     Active Substance: AMOXICILLIN\CLAVULANATE POTASSIUM
     Dosage: 500MG - 125 MG 1 P.O DAY TWICE A DAY
     Route: 048
     Dates: end: 20240529
  18. AUGMENTIN [Concomitant]
     Active Substance: AMOXICILLIN\CLAVULANATE POTASSIUM
     Dosage: 500MG - 125 MG
     Route: 048
     Dates: end: 20240529
  19. CARAFATE [Concomitant]
     Active Substance: SUCRALFATE
     Dosage: 100 MG/ML
     Route: 048
  20. CLOBETASOL [Concomitant]
     Active Substance: CLOBETASOL
     Dosage: LOTION, AS NEEDED
  21. DICYCLOMINE [Concomitant]
     Active Substance: DICYCLOMINE HYDROCHLORIDE
  22. FUROSEMIDE [Concomitant]
     Active Substance: FUROSEMIDE
     Route: 048
  23. GABAPENTIN [Concomitant]
     Active Substance: GABAPENTIN
  24. LASIX [Concomitant]
     Active Substance: FUROSEMIDE
     Route: 048
  25. LYRICA [Concomitant]
     Active Substance: PREGABALIN
     Route: 048
  26. DIPHENHYDRAMINE HYDROCHLORIDE\LIDOCAINE HYDROCHLORIDE\NYSTATIN [Concomitant]
     Active Substance: DIPHENHYDRAMINE HYDROCHLORIDE\LIDOCAINE HYDROCHLORIDE\NYSTATIN
     Dosage: INSTRUCTIONS: EQUAL PARTS:NYSTATIN 12.5MG/5ML;DECADRON 0.5MG/5ML;TETRACYCIINE 2- ?250MG CAPS OPEN. 4
  27. MEDROL [Concomitant]
     Active Substance: METHYLPREDNISOLONE
  28. PERIDEX [CHLORHEXIDINE GLUCONATE] [Concomitant]
     Dosage: SWISH AND GARGLE 10-15 ML

REACTIONS (13)
  - Dermatitis [Unknown]
  - Cough [Unknown]
  - Headache [Unknown]
  - Neuropathy peripheral [Recovering/Resolving]
  - Insomnia [Unknown]
  - Cutaneous vasculitis [Recovering/Resolving]
  - Candida infection [Unknown]
  - Cellulitis [Recovering/Resolving]
  - Extremity necrosis [Recovering/Resolving]
  - Hyperkalaemia [Unknown]
  - Abdominal discomfort [Not Recovered/Not Resolved]
  - Dehydration [Unknown]
  - Off label use [Unknown]

NARRATIVE: CASE EVENT DATE: 20240314
